FAERS Safety Report 13332157 (Version 1)
Quarter: 2017Q1

REPORT INFORMATION
  Report Type: Spontaneous
  Country: US (occurrence: US)
  Receive Date: 20170313
  Receipt Date: 20170313
  Transmission Date: 20170428
  Serious: No
  Sender: FDA-Public Use
  Company Number: 2014-003549 WARNER CHILCOTT

PATIENT
  Sex: Female

DRUGS (2)
  1. ASACOL HD [Suspect]
     Active Substance: MESALAMINE
     Route: 065
  2. ASACOL HD [Suspect]
     Active Substance: MESALAMINE
     Route: 048
     Dates: start: 201411

REACTIONS (2)
  - Medication residue present [Unknown]
  - Drug ineffective [Unknown]
